FAERS Safety Report 18139261 (Version 1)
Quarter: 2020Q3

REPORT INFORMATION
  Report Type: Spontaneous
  Country: US (occurrence: US)
  Receive Date: 20200811
  Receipt Date: 20200811
  Transmission Date: 20201103
  Serious: No
  Sender: FDA-Public Use
  Company Number: None

PATIENT
  Age: 60 Year
  Sex: Female

DRUGS (1)
  1. SPRYCEL [Suspect]
     Active Substance: DASATINIB
     Route: 048
     Dates: start: 202003

REACTIONS (6)
  - Astigmatism [None]
  - Headache [None]
  - Condition aggravated [None]
  - Alopecia [None]
  - Taste disorder [None]
  - Bone pain [None]

NARRATIVE: CASE EVENT DATE: 20200811
